FAERS Safety Report 7916573-8 (Version None)
Quarter: 2011Q4

REPORT INFORMATION
  Report Type: 
  Country: None (occurrence: None)
  Receive Date: 20111114
  Receipt Date: 20111107
  Transmission Date: 20120403
  Serious: Yes (Hospitalization, Disabling, Other)
  Sender: FDA-Public Use
  Company Number: 2011SP014788

PATIENT
  Age: 34 Year
  Sex: Female
  Weight: 77.1115 kg

DRUGS (5)
  1. NARDIL [Suspect]
     Indication: DEPRESSION
  2. NUVARING [Suspect]
     Indication: CONTRACEPTION
     Dosage: QM
     Dates: start: 20080101, end: 20090401
  3. NUVARING [Suspect]
     Indication: MOOD ALTERED
     Dosage: QM
     Dates: start: 20080101, end: 20090401
  4. NUVARING [Suspect]
     Indication: CONTRACEPTION
     Dosage: QM
     Dates: start: 20060101
  5. NUVARING [Suspect]
     Indication: MOOD ALTERED
     Dosage: QM
     Dates: start: 20060101

REACTIONS (22)
  - IMPAIRED WORK ABILITY [None]
  - HYPOTENSION [None]
  - ANTEPARTUM HAEMORRHAGE [None]
  - MASTOIDITIS [None]
  - CONDITION AGGRAVATED [None]
  - MENSTRUATION IRREGULAR [None]
  - DEEP VEIN THROMBOSIS [None]
  - MENINGITIS VIRAL [None]
  - STRESS [None]
  - PLEOCYTOSIS [None]
  - PREGNANCY [None]
  - DEPRESSION [None]
  - DRUG ABUSE [None]
  - URINARY TRACT INFECTION [None]
  - FATIGUE [None]
  - ENCEPHALITIS [None]
  - SUICIDAL IDEATION [None]
  - SUPERIOR SAGITTAL SINUS THROMBOSIS [None]
  - MUSCLE TWITCHING [None]
  - TRANSVERSE SINUS THROMBOSIS [None]
  - RED BLOOD CELL COUNT DECREASED [None]
  - PLASMINOGEN ACTIVATOR INHIBITOR INCREASED [None]
